FAERS Safety Report 4562350-8 (Version None)
Quarter: 2005Q1

REPORT INFORMATION
  Report Type: 
  Country: None (occurrence: None)
  Receive Date: 20050127
  Receipt Date: 20041111
  Transmission Date: 20050727
  Serious: No
  Sender: FDA-Public Use
  Company Number: US-BRISTOL-MYERS SQUIBB COMPANY-12763389

PATIENT
  Age: 81 Year
  Sex: Female

DRUGS (1)
  1. PARAPLATIN AQ [Suspect]
     Indication: OVARIAN CANCER
     Route: 042
     Dates: start: 20041104, end: 20041104

REACTIONS (4)
  - BLOOD PRESSURE INCREASED [None]
  - DIZZINESS [None]
  - PRURITUS [None]
  - THROAT IRRITATION [None]
